FAERS Safety Report 8066409-2 (Version None)
Quarter: 2012Q1

REPORT INFORMATION
  Report Type: 
  Country: None (occurrence: None)
  Receive Date: 20120124
  Receipt Date: 20120124
  Transmission Date: 20120608
  Serious: Yes (Other)
  Sender: FDA-Public Use
  Company Number: None

PATIENT
  Sex: Female
  Weight: 64.863 kg

DRUGS (1)
  1. TRICOR [Suspect]
     Indication: BLOOD CHOLESTEROL INCREASED
     Dates: start: 20111023, end: 20111107

REACTIONS (5)
  - ABDOMINAL PAIN [None]
  - REACTION TO DRUG EXCIPIENTS [None]
  - DERMATITIS HERPETIFORMIS [None]
  - ASTHMA [None]
  - SKIN LESION [None]
